FAERS Safety Report 11608483 (Version 18)
Quarter: 2016Q3

REPORT INFORMATION
  Report Type: Report from Study
  Country: CA (occurrence: CA)
  Receive Date: 20151007
  Receipt Date: 20160706
  Transmission Date: 20161109
  Serious: Yes (Hospitalization, Other)
  Sender: FDA-Public Use
  Company Number: CA-ROCHE-1592804

PATIENT
  Age: 62 Year
  Sex: Female
  Weight: 76.5 kg

DRUGS (7)
  1. PERJETA [Suspect]
     Active Substance: PERTUZUMAB
     Route: 042
     Dates: start: 20150706
  2. HERCEPTIN [Suspect]
     Active Substance: TRASTUZUMAB
     Indication: HER-2 POSITIVE BREAST CANCER
     Route: 042
     Dates: start: 20130323
  3. ZYVOXAM [Suspect]
     Active Substance: LINEZOLID
     Indication: PRODUCT USED FOR UNKNOWN INDICATION
     Dosage: 2 PILLS FOR 5 DAYS
     Route: 048
  4. TAXOL [Suspect]
     Active Substance: PACLITAXEL
     Indication: HER-2 POSITIVE BREAST CANCER
     Route: 065
     Dates: start: 20150124
  5. PERJETA [Suspect]
     Active Substance: PERTUZUMAB
     Indication: HER-2 POSITIVE BREAST CANCER
     Route: 042
     Dates: start: 20150615
  6. VANCOMYCIN [Suspect]
     Active Substance: VANCOMYCIN
     Indication: PRODUCT USED FOR UNKNOWN INDICATION
     Route: 042
  7. VITAMIN C [Concomitant]
     Active Substance: ASCORBIC ACID

REACTIONS (41)
  - Neutrophil count increased [Not Recovered/Not Resolved]
  - Mean platelet volume decreased [Not Recovered/Not Resolved]
  - White blood cell count decreased [Unknown]
  - Monocyte count increased [Unknown]
  - Alanine aminotransferase increased [Not Recovered/Not Resolved]
  - Haemoglobin decreased [Not Recovered/Not Resolved]
  - Diarrhoea [Unknown]
  - Neutrophil count decreased [Unknown]
  - Urinary tract infection [Recovered/Resolved]
  - Dysgeusia [Unknown]
  - Abdominal pain upper [Not Recovered/Not Resolved]
  - Gastritis [Unknown]
  - Blood glucose increased [Unknown]
  - Asthenia [Unknown]
  - Blood magnesium decreased [Not Recovered/Not Resolved]
  - Platelet count decreased [Unknown]
  - Lymphocyte count decreased [Not Recovered/Not Resolved]
  - Blood chloride decreased [Not Recovered/Not Resolved]
  - Urinary tract infection [Recovered/Resolved]
  - Blood pressure increased [Unknown]
  - Fatigue [Not Recovered/Not Resolved]
  - Diarrhoea [Not Recovered/Not Resolved]
  - Haematocrit decreased [Unknown]
  - Carbohydrate antigen 15-3 increased [Unknown]
  - Blood calcium decreased [Unknown]
  - Neuropathy peripheral [Not Recovered/Not Resolved]
  - Nail discolouration [Not Recovered/Not Resolved]
  - Condition aggravated [Unknown]
  - Abdominal distension [Not Recovered/Not Resolved]
  - Mean cell haemoglobin increased [Unknown]
  - Red cell distribution width increased [Not Recovered/Not Resolved]
  - Infusion site erythema [Recovered/Resolved]
  - Pneumonia [Recovered/Resolved]
  - Weight decreased [Not Recovered/Not Resolved]
  - Blood lactate dehydrogenase increased [Unknown]
  - Cellulitis [Unknown]
  - Hypoaesthesia [Unknown]
  - Red blood cell count decreased [Not Recovered/Not Resolved]
  - Aspartate aminotransferase increased [Unknown]
  - Mean cell volume increased [Not Recovered/Not Resolved]
  - Eczema [Unknown]

NARRATIVE: CASE EVENT DATE: 2015
